FAERS Safety Report 4787375-9 (Version None)
Quarter: 2005Q4

REPORT INFORMATION
  Report Type: 
  Country: None (occurrence: None)
  Receive Date: 20051003
  Receipt Date: 20050920
  Transmission Date: 20060501
  Serious: Yes (Hospitalization)
  Sender: FDA-Public Use
  Company Number: 2005082796

PATIENT
  Age: 37 Year
  Sex: Female

DRUGS (11)
  1. CLINDAMYCIN HYDROCHLORIDE [Suspect]
     Indication: SKIN INFECTION
     Dosage: ORAL
     Route: 048
  2. FOLIC ACID [Concomitant]
  3. CETIRIZINE HCL [Concomitant]
  4. METHOTREXATE [Concomitant]
  5. ACETAMINOPHEN [Concomitant]
  6. PARALGIN FORTE (CODEINE PHOSPHATE, PARACETAMOL) [Concomitant]
  7. HUMIRA [Concomitant]
  8. NEXIUM [Concomitant]
  9. VALLERGAN (ALIMEMAZINE TARTRATE) [Concomitant]
  10. CALCIGRAN FORTE (CALCIUM CARBONATE, COLECALCIFEROL) [Concomitant]
  11. ARCOXIA [Concomitant]

REACTIONS (1)
  - CLOSTRIDIUM COLITIS [None]
